FAERS Safety Report 8515222-8 (Version None)
Quarter: 2012Q3

REPORT INFORMATION
  Report Type: 
  Country: None (occurrence: None)
  Receive Date: 20120717
  Receipt Date: 20120705
  Transmission Date: 20120928
  Serious: No
  Sender: FDA-Public Use
  Company Number: US-ASTRAZENECA-2012SE45698

PATIENT
  Age: 59 Year
  Sex: Female
  Weight: 72.6 kg

DRUGS (2)
  1. SPIRIVA [Concomitant]
  2. SYMBICORT [Suspect]
     Indication: EMPHYSEMA
     Dosage: 160/4.5 MCG TWO TIMES A DAY
     Route: 055
     Dates: start: 20120701

REACTIONS (2)
  - DYSPNOEA [None]
  - DRUG EFFECT DECREASED [None]
